FAERS Safety Report 8485870 (Version 2)
Quarter: 2012Q4

REPORT INFORMATION
  Report Type: 
  Country: SI (occurrence: SI)
  Receive Date: 20120330
  Receipt Date: 20121101
  Transmission Date: 20130627
  Serious: Yes (Other)
  Sender: FDA-Public Use
  Company Number: SI-RB-038633-12

PATIENT
  Sex: Male

DRUGS (3)
  1. SUBOXONE [Suspect]
     Indication: DRUG DEPENDENCE
     Dosage: Dosing details unknown
     Route: 065
     Dates: start: 200905
  2. SUBUTEX [Suspect]
     Indication: DRUG DEPENDENCE
     Dosage: Dosing details unknown
     Route: 060
     Dates: start: 20050620, end: 20051021
  3. SUBUTEX [Suspect]
     Dosage: Dosing details unknown
     Route: 065
     Dates: start: 20080708

REACTIONS (1)
  - Testis cancer [Unknown]
